FAERS Safety Report 4929292-7 (Version None)
Quarter: 2006Q1

REPORT INFORMATION
  Report Type: 
  Country: None (occurrence: None)
  Receive Date: 20060127
  Receipt Date: 20050309
  Transmission Date: 20060701
  Serious: Yes (Other)
  Sender: FDA-Public Use
  Company Number: 04-05-0714

PATIENT
  Age: 75 Year
  Sex: Male
  Weight: 81.6475 kg

DRUGS (7)
  1. FUROSEMIDE [Suspect]
     Indication: DIURETIC THERAPY
     Dosage: 40 MG QD, ORAL
     Route: 048
     Dates: start: 20010301, end: 20040415
  2. METOPROLOL TARTRATE [Concomitant]
  3. ATACAND [Concomitant]
  4. ACETYLSALICYLIC ACID SRT [Concomitant]
  5. CLONIDINE [Concomitant]
  6. ALLOPURINOL [Concomitant]
  7. PRAVACHOL [Concomitant]

REACTIONS (1)
  - DEAFNESS [None]
